FAERS Safety Report 22519782 (Version 1)
Quarter: 2023Q2

REPORT INFORMATION
  Report Type: Spontaneous
  Country: US (occurrence: US)
  Receive Date: 20230605
  Receipt Date: 20230605
  Transmission Date: 20230722
  Serious: Yes (Hospitalization, Other)
  Sender: FDA-Public Use
  Company Number: US-APOTEX-2023AP008511

PATIENT
  Age: 62 Year
  Sex: Male

DRUGS (2)
  1. BALSALAZIDE [Suspect]
     Active Substance: BALSALAZIDE
     Indication: Haematochezia
     Dosage: UNK
     Route: 065
  2. BALSALAZIDE [Suspect]
     Active Substance: BALSALAZIDE
     Indication: Condition aggravated

REACTIONS (2)
  - Shock haemorrhagic [Recovered/Resolved]
  - Drug hypersensitivity [Recovered/Resolved]
